FAERS Safety Report 9701585 (Version 2)
Quarter: 2013Q4

REPORT INFORMATION
  Report Type: Spontaneous
  Country: US (occurrence: US)
  Receive Date: 20131119
  Receipt Date: 20131119
  Transmission Date: 20140711
  Serious: Yes (Other)
  Sender: FDA-Public Use
  Company Number: US-ORACLE-2011S1000075

PATIENT
  Age: 55 Year
  Sex: Male

DRUGS (15)
  1. KRYSTEXXA INJECTION [Suspect]
     Indication: GOUT
     Route: 042
     Dates: start: 20110920, end: 20110920
  2. KRYSTEXXA INJECTION [Suspect]
     Indication: GOUT
     Route: 042
     Dates: start: 20110906, end: 20110906
  3. KRYSTEXXA INJECTION [Suspect]
     Indication: GOUT
     Route: 042
     Dates: start: 20110823, end: 20110823
  4. KRYSTEXXA INJECTION [Suspect]
     Indication: GOUT
     Route: 042
     Dates: start: 20110809, end: 20110809
  5. BENADRYL /00945501/ [Concomitant]
     Indication: PREMEDICATION
     Route: 042
     Dates: start: 20110920, end: 20110920
  6. BENADRYL /00945501/ [Concomitant]
     Indication: PREMEDICATION
     Route: 042
     Dates: start: 20110906, end: 20110906
  7. BENADRYL /00945501/ [Concomitant]
     Indication: PREMEDICATION
     Route: 042
     Dates: start: 20110823, end: 20110823
  8. BENADRYL /00945501/ [Concomitant]
     Indication: PREMEDICATION
     Route: 042
     Dates: start: 20110809, end: 20110809
  9. SOLU-MEDROL [Concomitant]
     Indication: PREMEDICATION
     Route: 042
     Dates: start: 20110920, end: 20110920
  10. SOLU-MEDROL [Concomitant]
     Indication: PREMEDICATION
     Route: 042
     Dates: start: 20110906, end: 20110906
  11. SOLU-MEDROL [Concomitant]
     Indication: PREMEDICATION
     Route: 042
     Dates: start: 20110823, end: 20110823
  12. SOLU-MEDROL [Concomitant]
     Indication: PREMEDICATION
     Route: 042
     Dates: start: 20110809, end: 20110809
  13. COLCRYS [Concomitant]
     Indication: GOUT
     Route: 048
  14. ALLOPURINOL [Concomitant]
     Indication: GOUT
     Route: 048
  15. INDOCIN /00003801/ [Concomitant]
     Indication: PRODUCT USED FOR UNKNOWN INDICATION

REACTIONS (2)
  - Infusion related reaction [Recovered/Resolved]
  - Therapeutic response decreased [Unknown]
